FAERS Safety Report 8788641 (Version 2)
Quarter: 2012Q4

REPORT INFORMATION
  Report Type: 
  Country: FR (occurrence: FR)
  Receive Date: 20120917
  Receipt Date: 20121029
  Transmission Date: 20130627
  Serious: No
  Sender: FDA-Public Use
  Company Number: FR-JNJFOC-20120903030

PATIENT
  Sex: Male
  Weight: 80 kg

DRUGS (2)
  1. DUROGESIC [Suspect]
     Indication: CANCER PAIN
     Route: 062
     Dates: start: 20120711
  2. DUROGESIC [Suspect]
     Indication: CANCER PAIN
     Route: 062

REACTIONS (3)
  - Wrong technique in drug usage process [Unknown]
  - Product quality issue [Unknown]
  - Wrong technique in drug usage process [Unknown]
